FAERS Safety Report 13637897 (Version 1)
Quarter: 2017Q2

REPORT INFORMATION
  Report Type: Spontaneous
  Country: US (occurrence: US)
  Receive Date: 20170609
  Receipt Date: 20170609
  Transmission Date: 20170830
  Serious: Yes (Other)
  Sender: FDA-Public Use
  Company Number: US-BAYER-2017-102232

PATIENT
  Age: 29 Year
  Sex: Male
  Weight: 86.17 kg

DRUGS (3)
  1. MILK OF MAGNESIA [Suspect]
     Active Substance: MAGNESIUM HYDROXIDE
     Indication: GASTROINTESTINAL DISORDER
     Dosage: 2 DF (TABLESPOON), UNK
     Route: 048
     Dates: start: 20170521, end: 20170523
  2. MILK OF MAGNESIA [Suspect]
     Active Substance: MAGNESIUM HYDROXIDE
     Indication: FOOD POISONING
     Dosage: ADDITIONAL TOOK THREE HALF DOSES (1 TABLESPOON) WITHIN 48 HOURS
  3. MILK OF MAGNESIA [Suspect]
     Active Substance: MAGNESIUM HYDROXIDE
     Indication: CONSTIPATION

REACTIONS (3)
  - Haematochezia [Recovered/Resolved]
  - Rectal haemorrhage [Unknown]
  - Constipation [Unknown]

NARRATIVE: CASE EVENT DATE: 2017
